FAERS Safety Report 11461350 (Version 1)
Quarter: 2015Q3

REPORT INFORMATION
  Report Type: Spontaneous
  Country: US (occurrence: US)
  Receive Date: 20150831
  Receipt Date: 20150831
  Transmission Date: 20151125
  Serious: No
  Sender: FDA-Public Use
  Company Number: US-ELI_LILLY_AND_COMPANY-US201007005275

PATIENT
  Age: 82 Year
  Sex: Female

DRUGS (2)
  1. CYMBALTA [Suspect]
     Active Substance: DULOXETINE HYDROCHLORIDE
     Dosage: 60 MG, UNK
     Dates: end: 20100719
  2. EXELON [Concomitant]
     Active Substance: RIVASTIGMINE TARTRATE

REACTIONS (3)
  - Insomnia [Unknown]
  - Arthralgia [Unknown]
  - Myalgia [Unknown]
